FAERS Safety Report 25681568 (Version 1)
Quarter: 2025Q3

REPORT INFORMATION
  Report Type: Report from Study
  Country: US (occurrence: US)
  Receive Date: 20250814
  Receipt Date: 20250814
  Transmission Date: 20251020
  Serious: Yes (Hospitalization, Other)
  Sender: ACADIA PHARMACEUTICALS
  Company Number: US-ACADIA PHARMACEUTICALS INC.-ACA-2025-PIM-009186

PATIENT
  Age: 78 Year
  Sex: Male

DRUGS (12)
  1. NUPLAZID [Suspect]
     Active Substance: PIMAVANSERIN TARTRATE
     Indication: Parkinson^s disease
     Dosage: 34 MILLIGRAM, QD
     Route: 048
     Dates: start: 20250103, end: 20250808
  2. NUPLAZID [Suspect]
     Active Substance: PIMAVANSERIN TARTRATE
     Dosage: 34 MILLIGRAM, QD
     Route: 048
     Dates: start: 20250810
  3. CALCIUM [Concomitant]
     Active Substance: CALCIUM
  4. LAGEVRIO [Concomitant]
     Active Substance: MOLNUPIRAVIR
  5. DOCUSATE [Concomitant]
     Active Substance: DOCUSATE
  6. FLUCONAZOLE [Concomitant]
     Active Substance: FLUCONAZOLE
  7. CLONAZEPAM [Concomitant]
     Active Substance: CLONAZEPAM
  8. LEXAPRO [Concomitant]
     Active Substance: ESCITALOPRAM OXALATE
  9. AMOXICILLIN [Concomitant]
     Active Substance: AMOXICILLIN
  10. DIAZEPAM [Concomitant]
     Active Substance: DIAZEPAM
  11. ECONAZOLE NITRATE [Concomitant]
     Active Substance: ECONAZOLE NITRATE
  12. CHOLECALCIFEROL [Concomitant]
     Active Substance: CHOLECALCIFEROL

REACTIONS (4)
  - Pneumonia [Not Recovered/Not Resolved]
  - COVID-19 [Not Recovered/Not Resolved]
  - Urinary tract infection [Not Recovered/Not Resolved]
  - Product dose omission issue [Not Recovered/Not Resolved]

NARRATIVE: CASE EVENT DATE: 20250808
